FAERS Safety Report 25570844 (Version 1)
Quarter: 2025Q3

REPORT INFORMATION
  Report Type: Spontaneous
  Country: US (occurrence: US)
  Receive Date: 20250717
  Receipt Date: 20250717
  Transmission Date: 20251020
  Serious: Yes (Other)
  Sender: EXELA PHARMA SCIENCES
  Company Number: US-EXELAPHARMA-2025EXLA00121

PATIENT
  Age: 49 Year
  Sex: Female

DRUGS (6)
  1. FENTANYL CITRATE [Suspect]
     Active Substance: FENTANYL CITRATE
     Indication: Sedation
     Route: 040
     Dates: start: 20250316
  2. FENTANYL CITRATE [Suspect]
     Active Substance: FENTANYL CITRATE
     Indication: Analgesic therapy
     Dates: start: 20250316, end: 20250317
  3. LISINOPRIL [Concomitant]
     Active Substance: LISINOPRIL
     Indication: Hypertension
     Dosage: DAILY
  4. PROPOFOL [Concomitant]
     Active Substance: PROPOFOL
     Route: 042
     Dates: start: 20250316
  5. ROCURONIUM [Concomitant]
     Active Substance: ROCURONIUM BROMIDE
     Indication: Paralysis
     Route: 042
     Dates: start: 20250316
  6. SEVOFLURANE [Concomitant]
     Active Substance: SEVOFLURANE
     Dates: start: 20250316

REACTIONS (7)
  - Respiratory acidosis [Recovered/Resolved]
  - Mechanical ventilation complication [Recovered/Resolved]
  - Oxygen saturation decreased [Recovered/Resolved]
  - Muscle rigidity [Recovered/Resolved]
  - Chest wall rigidity [Recovered/Resolved]
  - Respiratory rate increased [Recovered/Resolved]
  - Hypoventilation [Recovered/Resolved]

NARRATIVE: CASE EVENT DATE: 20250317
